FAERS Safety Report 6573398-6 (Version None)
Quarter: 2010Q1

REPORT INFORMATION
  Report Type: 
  Country: None (occurrence: None)
  Receive Date: 20100208
  Receipt Date: 20100129
  Transmission Date: 20100710
  Serious: Yes (Hospitalization)
  Sender: FDA-Public Use
  Company Number: GB-PFIZER INC-2010012790

PATIENT
  Age: 22 Year
  Sex: Female

DRUGS (3)
  1. DEPO-PROVERA [Suspect]
     Indication: CONTRACEPTION
     Dosage: FIRST INJECTION
     Dates: start: 20090801
  2. DEPO-PROVERA [Suspect]
     Dosage: SECOND INJECTION
     Dates: start: 20091020
  3. DEPO-PROVERA [Suspect]
     Dosage: THIRD INJECTION
     Dates: start: 20100104

REACTIONS (3)
  - ABORTION SPONTANEOUS [None]
  - DRUG INEFFECTIVE [None]
  - UNINTENDED PREGNANCY [None]
